FAERS Safety Report 26009858 (Version 1)
Quarter: 2025Q4

REPORT INFORMATION
  Report Type: Report from Study
  Country: EU (occurrence: EU)
  Receive Date: 20251107
  Receipt Date: 20251107
  Transmission Date: 20260117
  Serious: Yes (Hospitalization)
  Sender: ABBVIE
  Company Number: EU-ABBVIE-6532446

PATIENT
  Age: 73 Year
  Sex: Female

DRUGS (5)
  1. CARBIDOPA\LEVODOPA [Suspect]
     Active Substance: CARBIDOPA\LEVODOPA
     Indication: Parkinson^s disease
     Dosage: NIGHT CONTINUOUS DOSE - 4.2; EXTRA DOSE - 4; CONTINUOUS DOSE - 6.4; ATF- 3; MORNING DOSE - 6.
     Route: 050
     Dates: start: 20121001
  2. CARBIDOPA\LEVODOPA [Suspect]
     Active Substance: CARBIDOPA\LEVODOPA
  3. STALEVO [Concomitant]
     Active Substance: CARBIDOPA\ENTACAPONE\LEVODOPA
     Indication: Product used for unknown indication
     Dosage: STRENGTH - 150
     Dates: start: 20120620
  4. STALEVO [Concomitant]
     Active Substance: CARBIDOPA\ENTACAPONE\LEVODOPA
     Indication: Product used for unknown indication
     Dosage: STRENGTH - 200
     Dates: start: 20120620
  5. STALEVO [Concomitant]
     Active Substance: CARBIDOPA\ENTACAPONE\LEVODOPA
     Indication: Product used for unknown indication
     Dosage: STRENGTH - 100
     Dates: start: 20120620

REACTIONS (3)
  - Hip fracture [Unknown]
  - Device issue [Unknown]
  - Device loosening [Unknown]

NARRATIVE: CASE EVENT DATE: 20251103
